FAERS Safety Report 5330567-0 (Version None)
Quarter: 2007Q2

REPORT INFORMATION
  Report Type: 
  Country: None (occurrence: None)
  Receive Date: 20070516
  Receipt Date: 20070503
  Transmission Date: 20071010
  Serious: Yes (Death)
  Sender: FDA-Public Use
  Company Number: B0470412A

PATIENT
  Age: 18 Year
  Sex: Female

DRUGS (7)
  1. BUSULPHAN (FORMULATION UNKNOWN) (BUSULFAN)BUSULFAN) (GENERIC) [Suspect]
     Indication: CENTRAL NERVOUS SYSTEM LYMPHOMA
     Dosage: FOUR TIMES PER DAY / ORAL
     Route: 048
  2. THIOTEPA [Suspect]
     Indication: CENTRAL NERVOUS SYSTEM LYMPHOMA
     Dosage: 5 MG/KG
  3. FILGRASTIM [Concomitant]
  4. RITUXIMAB [Concomitant]
  5. DEXAMETHASONE [Concomitant]
  6. CYTARABINE [Concomitant]
  7. CISPLATIN [Concomitant]

REACTIONS (6)
  - CEREBRAL DISORDER [None]
  - DISEASE RECURRENCE [None]
  - INFECTION [None]
  - MUCOSAL INFLAMMATION [None]
  - NEUROTOXICITY [None]
  - PNEUMONIA [None]
